FAERS Safety Report 6190490-9 (Version None)
Quarter: 2009Q2

REPORT INFORMATION
  Report Type: 
  Country: None (occurrence: None)
  Receive Date: 20090514
  Receipt Date: 20090507
  Transmission Date: 20091009
  Serious: Yes (Other)
  Sender: FDA-Public Use
  Company Number: US-AVENTIS-200913983US

PATIENT
  Sex: Female

DRUGS (16)
  1. LANTUS [Suspect]
     Indication: DIABETES MELLITUS
     Route: 058
  2. OPTICLIK (INSULIN INJECTION PEN) [Suspect]
     Indication: DIABETES MELLITUS
  3. VASOTEC                            /00935901/ [Concomitant]
     Dosage: DOSE: UNK
  4. INDERAL LA [Concomitant]
     Dosage: DOSE: UNK
  5. SIMVASTATIN [Concomitant]
     Dosage: DOSE: UNK
  6. ANTIVERT [Concomitant]
     Dosage: DOSE: UNK
  7. REGULAN                            /00091301/ [Concomitant]
     Dosage: DOSE: UNK
  8. ZOFRAN [Concomitant]
     Dosage: DOSE: UNK
  9. ZETIA [Concomitant]
     Dosage: DOSE: UNK
  10. AMITRIPTYLENE [Concomitant]
     Dosage: DOSE: UNK
  11. PERCOCET [Concomitant]
     Dosage: DOSE: UNK
  12. STADOL [Concomitant]
     Dosage: DOSE: UNK
  13. CLONIDINE [Concomitant]
     Dosage: DOSE: UNK
  14. NOVOLIN R [Concomitant]
     Dosage: DOSE: 35 UNITS IN THE AM AND 25 IN THE PM
     Route: 051
  15. NOVOLIN N [Concomitant]
     Route: 051
  16. VALIUM [Concomitant]
     Dosage: DOSE: UNK

REACTIONS (1)
  - RETINAL DISORDER [None]
